FAERS Safety Report 9038790 (Version 1)
Quarter: 2013Q1

REPORT INFORMATION
  Report Type: Spontaneous
  Country: US (occurrence: None)
  Receive Date: 20130122
  Receipt Date: 20130122
  Transmission Date: 20140127
  Serious: Yes (Hospitalization)
  Sender: FDA-Public Use
  Company Number: None

PATIENT
  Age: 49 Year
  Sex: Male
  Weight: 104.78 kg

DRUGS (3)
  1. PEGASYS [Suspect]
     Indication: HEPATITIS C
     Dosage: 180 MCG EACH WEEK SUBCUTANEOUSLY/ 600 MG BID
     Route: 058
     Dates: start: 20120508
  2. VICTRELLIS [Concomitant]
  3. RIBASPHERE [Suspect]
     Route: 048

REACTIONS (2)
  - Pneumonia [None]
  - Influenza [None]
